FAERS Safety Report 18097802 (Version 2)
Quarter: 2020Q3

REPORT INFORMATION
  Report Type: Spontaneous
  Country: CA (occurrence: CA)
  Receive Date: 20200731
  Receipt Date: 20200807
  Transmission Date: 20201103
  Serious: Yes (Hospitalization, Other)
  Sender: FDA-Public Use
  Company Number: CA-BAXTER-2020BAX014979

PATIENT
  Age: 10 Year
  Sex: Male

DRUGS (74)
  1. PROCYTOX (CYCLOPHOSPHAMIDE) 2000MG/VIAL [Suspect]
     Active Substance: CYCLOPHOSPHAMIDE
     Dosage: DOSAGE FORM ? NOT SPECIFIED
     Route: 037
  2. PROCYTOX (CYCLOPHOSPHAMIDE) 2000MG/VIAL [Suspect]
     Active Substance: CYCLOPHOSPHAMIDE
     Route: 042
  3. METHOTREXATE SODIUM. [Suspect]
     Active Substance: METHOTREXATE SODIUM
     Indication: BURKITT^S LYMPHOMA STAGE III
     Dosage: DOSAGE FORM ? NOT SPECIFIED
     Route: 042
  4. RITUXAN [Suspect]
     Active Substance: RITUXIMAB
     Indication: BURKITT^S LYMPHOMA STAGE III
     Route: 065
  5. VINCRISTINE SULFATE. [Suspect]
     Active Substance: VINCRISTINE SULFATE
     Route: 040
  6. PREDNISONE. [Suspect]
     Active Substance: PREDNISONE
     Route: 048
  7. HYDROCORTISONE MYLAN [Suspect]
     Active Substance: HYDROCORTISONE
     Route: 037
  8. CYTARABINE MYLAN [Suspect]
     Active Substance: CYTARABINE
     Route: 042
  9. LEVOFLOXACIN. [Concomitant]
     Active Substance: LEVOFLOXACIN
     Indication: INHIBITORY DRUG INTERACTION
     Route: 065
  10. LEUCOVORIN. [Concomitant]
     Active Substance: LEUCOVORIN
     Route: 048
  11. PROCYTOX (CYCLOPHOSPHAMIDE) 2000MG/VIAL [Suspect]
     Active Substance: CYCLOPHOSPHAMIDE
     Route: 042
  12. PROCYTOX (CYCLOPHOSPHAMIDE) 2000MG/VIAL [Suspect]
     Active Substance: CYCLOPHOSPHAMIDE
     Route: 065
  13. DOXORUBICIN MYLAN [Suspect]
     Active Substance: DOXORUBICIN
     Dosage: SOLUTION INTRAVENOUS
     Route: 042
  14. DOXORUBICIN MYLAN [Suspect]
     Active Substance: DOXORUBICIN
     Route: 065
  15. LEUCOVORIN CALCIUM. [Suspect]
     Active Substance: LEUCOVORIN CALCIUM
     Indication: BURKITT^S LYMPHOMA STAGE III
     Route: 042
  16. METHOTREXATE SODIUM. [Suspect]
     Active Substance: METHOTREXATE SODIUM
     Route: 037
  17. METHOTREXATE SODIUM. [Suspect]
     Active Substance: METHOTREXATE SODIUM
     Dosage: ROUTE ? INTRATRACHEAL
     Route: 050
  18. VINCRISTINE SULFATE. [Suspect]
     Active Substance: VINCRISTINE SULFATE
     Route: 042
  19. PREDNISONE. [Suspect]
     Active Substance: PREDNISONE
     Dosage: DOSAGE FORM ? NOT SPECIFIED
     Route: 048
  20. HYDROCORTISONE MYLAN [Suspect]
     Active Substance: HYDROCORTISONE
     Indication: BURKITT^S LYMPHOMA STAGE III
     Dosage: DOSAGE FORM NOT SPECIFIED
     Route: 042
  21. CYTARABINE MYLAN [Suspect]
     Active Substance: CYTARABINE
     Route: 065
  22. CYTARABINE MYLAN [Suspect]
     Active Substance: CYTARABINE
     Route: 041
  23. GRANULOCYTE COLONY STIMULATING FACTOR [Concomitant]
     Active Substance: GRANULOCYTE COLONY-STIMULATING FACTOR NOS
     Indication: PRODUCT USED FOR UNKNOWN INDICATION
     Dosage: DOSAGE FORM ? NOT SPECIFIED
     Route: 065
  24. RASBURICASE [Concomitant]
     Active Substance: RASBURICASE
     Indication: TUMOUR LYSIS SYNDROME
     Route: 065
  25. RITUXAN [Suspect]
     Active Substance: RITUXIMAB
     Route: 042
  26. RITUXAN [Suspect]
     Active Substance: RITUXIMAB
     Route: 042
  27. PREDNISONE. [Suspect]
     Active Substance: PREDNISONE
     Indication: BURKITT^S LYMPHOMA STAGE III
     Dosage: DOSAGE FORM ? NOT SPECIFIED
     Route: 048
  28. HYDROCORTISONE MYLAN [Suspect]
     Active Substance: HYDROCORTISONE
     Route: 037
  29. HYDROCORTISONE MYLAN [Suspect]
     Active Substance: HYDROCORTISONE
     Route: 037
  30. HYDROCORTISONE MYLAN [Suspect]
     Active Substance: HYDROCORTISONE
     Dosage: ROUTE ? INTRATRACHEAL
     Route: 050
  31. FOLINIC ACID [Concomitant]
     Active Substance: LEUCOVORIN
     Indication: PROPHYLAXIS
     Dosage: DOSAGE FORM ? NOT SPECIFIED,
     Route: 048
  32. METHOTREXATE SODIUM. [Suspect]
     Active Substance: METHOTREXATE SODIUM
     Route: 037
  33. CYTARABINE MYLAN [Suspect]
     Active Substance: CYTARABINE
     Dosage: DOSAGE FORM ? NOT SPECIFIED
     Route: 037
  34. CANCIDAS [Concomitant]
     Active Substance: CASPOFUNGIN ACETATE
     Route: 065
  35. ETOPOSIDE. [Concomitant]
     Active Substance: ETOPOSIDE
     Indication: PRODUCT USED FOR UNKNOWN INDICATION
     Dosage: DOSAGE FORM ? NOT SPECIFIED
     Route: 065
  36. LEUCOVORIN. [Concomitant]
     Active Substance: LEUCOVORIN
     Route: 065
  37. PROCYTOX (CYCLOPHOSPHAMIDE) 2000MG/VIAL [Suspect]
     Active Substance: CYCLOPHOSPHAMIDE
     Route: 042
  38. METHOTREXATE SODIUM. [Suspect]
     Active Substance: METHOTREXATE SODIUM
     Route: 065
  39. VINCRISTINE SULFATE. [Suspect]
     Active Substance: VINCRISTINE SULFATE
     Dosage: DOSAGE FORM ? NOT SPECIFIED
     Route: 042
  40. ETOPOSIDE MYLAN [Suspect]
     Active Substance: ETOPOSIDE
     Indication: BURKITT^S LYMPHOMA STAGE III
     Route: 042
  41. ETOPOSIDE MYLAN [Suspect]
     Active Substance: ETOPOSIDE
     Route: 042
  42. ETOPOSIDE MYLAN [Suspect]
     Active Substance: ETOPOSIDE
     Dosage: DOSAGE FORM ? NOT SPECIFIED
     Route: 042
  43. CYTARABINE MYLAN [Suspect]
     Active Substance: CYTARABINE
     Indication: BURKITT^S LYMPHOMA STAGE III
     Route: 042
  44. CYTARABINE MYLAN [Suspect]
     Active Substance: CYTARABINE
     Dosage: POWDER FOR SOLUTION INTRATHECAL, ROUTE? INTRATRACHEAL
     Route: 050
  45. CYTARABINE MYLAN [Suspect]
     Active Substance: CYTARABINE
     Route: 037
  46. LEVOFLOXACIN. [Concomitant]
     Active Substance: LEVOFLOXACIN
     Indication: PROPHYLAXIS
     Dosage: DOSAGE FORM? NOT SPECIFIED
     Route: 048
  47. FILGRASTIM [Concomitant]
     Active Substance: FILGRASTIM
     Indication: PROPHYLAXIS
     Route: 058
  48. CYTARABINE. [Concomitant]
     Active Substance: CYTARABINE
     Indication: PRODUCT USED FOR UNKNOWN INDICATION
     Route: 065
  49. DOXORUBICIN MYLAN [Suspect]
     Active Substance: DOXORUBICIN
     Indication: BURKITT^S LYMPHOMA STAGE III
     Route: 042
  50. METHOTREXATE SODIUM. [Suspect]
     Active Substance: METHOTREXATE SODIUM
     Dosage: DOSAGE FORM ? NOT SPECIFIED
     Route: 042
  51. METHOTREXATE SODIUM. [Suspect]
     Active Substance: METHOTREXATE SODIUM
     Route: 042
  52. RITUXAN [Suspect]
     Active Substance: RITUXIMAB
     Route: 042
  53. VINCRISTINE SULFATE. [Suspect]
     Active Substance: VINCRISTINE SULFATE
     Indication: BURKITT^S LYMPHOMA STAGE III
     Route: 042
  54. VINCRISTINE SULFATE. [Suspect]
     Active Substance: VINCRISTINE SULFATE
     Route: 040
  55. CALCIUM FOLINATE [Suspect]
     Active Substance: LEUCOVORIN CALCIUM
     Indication: BURKITT^S LYMPHOMA STAGE III
     Route: 065
  56. CALCIUM FOLINATE [Suspect]
     Active Substance: LEUCOVORIN CALCIUM
     Route: 048
  57. CANCIDAS [Concomitant]
     Active Substance: CASPOFUNGIN ACETATE
     Indication: INHIBITORY DRUG INTERACTION
     Route: 042
  58. VINCRISTINE SULFATE. [Suspect]
     Active Substance: VINCRISTINE SULFATE
     Route: 065
  59. VINCRISTINE SULFATE. [Suspect]
     Active Substance: VINCRISTINE SULFATE
     Dosage: DOSAGE FORM ? NOT SPECIFIED
     Route: 042
  60. VINCRISTINE SULFATE. [Suspect]
     Active Substance: VINCRISTINE SULFATE
     Route: 040
  61. FILGRASTIM [Suspect]
     Active Substance: FILGRASTIM
     Indication: BURKITT^S LYMPHOMA STAGE III
     Route: 058
  62. FILGRASTIM [Concomitant]
     Active Substance: FILGRASTIM
     Route: 065
  63. PROCYTOX (CYCLOPHOSPHAMIDE) 2000MG/VIAL [Suspect]
     Active Substance: CYCLOPHOSPHAMIDE
     Indication: BURKITT^S LYMPHOMA STAGE III
     Route: 042
  64. METHOTREXATE SODIUM. [Suspect]
     Active Substance: METHOTREXATE SODIUM
     Dosage: DOSAGE FORM ? NOT SPECIFIED
     Route: 037
  65. METHOTREXATE SODIUM. [Suspect]
     Active Substance: METHOTREXATE SODIUM
     Route: 037
  66. PREDNISONE. [Suspect]
     Active Substance: PREDNISONE
     Dosage: DOSAGE FORM ? NOT SPECIFIED
     Route: 042
  67. PREDNISONE. [Suspect]
     Active Substance: PREDNISONE
     Dosage: DOSAGE FORM ? NOT SPECIFIED
     Route: 048
  68. PREDNISONE. [Suspect]
     Active Substance: PREDNISONE
     Route: 048
  69. HYDROCORTISONE MYLAN [Suspect]
     Active Substance: HYDROCORTISONE
     Route: 037
  70. PREDNISOLONE. [Suspect]
     Active Substance: PREDNISOLONE
     Indication: BURKITT^S LYMPHOMA STAGE III
     Route: 065
  71. CYTARABINE MYLAN [Suspect]
     Active Substance: CYTARABINE
     Dosage: ROUTE? INTRATRACHEAL, DOSAGE FORM ? NOT SPECIFIED
     Route: 050
  72. CYTARABINE MYLAN [Suspect]
     Active Substance: CYTARABINE
     Dosage: DOSAGE FORM ? NOT SPECIFIED
     Route: 037
  73. CYTARABINE MYLAN [Suspect]
     Active Substance: CYTARABINE
     Route: 041
  74. LEUCOVORIN. [Concomitant]
     Active Substance: LEUCOVORIN
     Indication: PRODUCT USED FOR UNKNOWN INDICATION
     Route: 065

REACTIONS (15)
  - Candida infection [Recovered/Resolved]
  - Off label use [Unknown]
  - Febrile neutropenia [Recovered/Resolved]
  - Clostridium difficile infection [Recovered/Resolved]
  - Skin disorder [Recovered/Resolved]
  - Mucosal inflammation [Recovered/Resolved]
  - Product use in unapproved indication [Unknown]
  - Tumour lysis syndrome [Unknown]
  - Rash erythematous [Recovered/Resolved]
  - Full blood count decreased [Recovered/Resolved]
  - Hypotension [Recovered/Resolved]
  - Enteritis [Unknown]
  - Rash pruritic [Recovered/Resolved]
  - Enteritis infectious [Recovered/Resolved]
  - Gastroenteritis bacterial [Unknown]
